FAERS Safety Report 6123640-0 (Version None)
Quarter: 2009Q1

REPORT INFORMATION
  Report Type: 
  Country: None (occurrence: None)
  Receive Date: 20090317
  Receipt Date: 20090306
  Transmission Date: 20090719
  Serious: Yes (Other)
  Sender: FDA-Public Use
  Company Number: 2009-00312

PATIENT
  Age: 73 Year
  Sex: Male
  Weight: 59 kg

DRUGS (1)
  1. VELCADE [Suspect]
     Indication: LYMPHOMA
     Dosage: INTRAVENOUS
     Route: 042
     Dates: start: 20081226

REACTIONS (8)
  - ANOREXIA [None]
  - COUGH [None]
  - DEAFNESS [None]
  - DIARRHOEA [None]
  - DYSPNOEA [None]
  - MOTOR DYSFUNCTION [None]
  - RESPIRATORY DISORDER [None]
  - VISION BLURRED [None]
